FAERS Safety Report 24988736 (Version 4)
Quarter: 2025Q1

REPORT INFORMATION
  Report Type: Spontaneous
  Country: JP (occurrence: JP)
  Receive Date: 20250220
  Receipt Date: 20250327
  Transmission Date: 20250408
  Serious: Yes (Hospitalization, Other)
  Sender: UCB
  Company Number: JP-UCBJ-CD202501988UCBPHAPROD

PATIENT
  Age: 46 Year
  Sex: Female

DRUGS (3)
  1. VIMPAT [Suspect]
     Active Substance: LACOSAMIDE
     Indication: Partial seizures
     Route: 048
  2. VIMPAT [Suspect]
     Active Substance: LACOSAMIDE
     Route: 048
  3. CARBAMAZEPINE [Concomitant]
     Active Substance: CARBAMAZEPINE
     Indication: Product used for unknown indication

REACTIONS (7)
  - Epilepsy [Recovered/Resolved]
  - Autism spectrum disorder [Recovered/Resolved]
  - Schizophrenia [Recovered/Resolved]
  - Petit mal epilepsy [Recovered/Resolved]
  - Focal dyscognitive seizures [Recovered/Resolved]
  - Abulia [Recovered/Resolved]
  - Mysophobia [Recovered/Resolved]
